FAERS Safety Report 12217201 (Version 1)
Quarter: 2016Q1

REPORT INFORMATION
  Report Type: Spontaneous
  Country: US (occurrence: None)
  Receive Date: 20160328
  Receipt Date: 20160328
  Transmission Date: 20160526
  Serious: Yes (Other)
  Sender: FDA-Public Use
  Company Number: None

PATIENT
  Age: 29 Year
  Sex: Female
  Weight: 81.65 kg

DRUGS (7)
  1. FISH OIL GUMMIES [Concomitant]
  2. CRANBERRY SUPPLEMENTS [Concomitant]
  3. PROPHYLACTIC BORIC ACID SUPPOSITORIES [Concomitant]
  4. TRANSDERM SCOP [Suspect]
     Active Substance: SCOPOLAMINE
     Indication: MOTION SICKNESS
     Dosage: 1 PATCH (ES) 1-3 DAYS APPLIED AS MEDICATED PATCH TO SKIN
     Dates: start: 20160320, end: 20160324
  5. VITAMIN D SUPPLEMENTS [Concomitant]
  6. BIOTIN SUPPLEMENTS [Concomitant]
  7. ZYRTEC [Concomitant]
     Active Substance: CETIRIZINE HYDROCHLORIDE

REACTIONS (10)
  - Bedridden [None]
  - Abdominal discomfort [None]
  - Muscle twitching [None]
  - Panic attack [None]
  - Nausea [None]
  - Dizziness [None]
  - Vertigo [None]
  - Drug withdrawal syndrome [None]
  - Dry mouth [None]
  - Essential tremor [None]

NARRATIVE: CASE EVENT DATE: 20160324
